FAERS Safety Report 7660656-7 (Version None)
Quarter: 2011Q3

REPORT INFORMATION
  Report Type: 
  Country: None (occurrence: None)
  Receive Date: 20110805
  Receipt Date: 20101102
  Transmission Date: 20111222
  Serious: No
  Sender: FDA-Public Use
  Company Number: US-ABBOTT-10P-163-0682791-00

PATIENT
  Age: 72 Year
  Sex: Male

DRUGS (3)
  1. NIASPAN [Suspect]
     Indication: BLOOD TRIGLYCERIDES INCREASED
     Dates: start: 20101001
  2. NIASPAN [Suspect]
  3. NIASPAN [Suspect]
     Indication: BLOOD TRIGLYCERIDES INCREASED
     Dates: start: 20100901, end: 20101001

REACTIONS (3)
  - PARAESTHESIA [None]
  - HOT FLUSH [None]
  - PRURITUS [None]
